FAERS Safety Report 14695955 (Version 2)
Quarter: 2018Q2

REPORT INFORMATION
  Report Type: Report from Study
  Country: AU (occurrence: AU)
  Receive Date: 20180329
  Receipt Date: 20180409
  Transmission Date: 20180711
  Serious: Yes (Other)
  Sender: FDA-Public Use
  Company Number: AU-GILEAD-2018-0329101

PATIENT
  Age: 78 Year
  Sex: Male

DRUGS (2)
  1. IDELALISIB [Suspect]
     Active Substance: IDELALISIB
     Indication: PRODUCT USED FOR UNKNOWN INDICATION
     Dosage: UNK
     Route: 065
     Dates: start: 20151119
  2. CEFTIN [Concomitant]
     Active Substance: CEFUROXIME AXETIL
     Indication: PROPHYLAXIS
     Dosage: UNK
     Dates: start: 20161122

REACTIONS (1)
  - Infective exacerbation of bronchiectasis [Recovering/Resolving]

NARRATIVE: CASE EVENT DATE: 201801
